FAERS Safety Report 20949078 (Version 2)
Quarter: 2022Q3

REPORT INFORMATION
  Report Type: Report from Study
  Country: CA (occurrence: CA)
  Receive Date: 20220613
  Receipt Date: 20220704
  Transmission Date: 20221027
  Serious: Yes (Hospitalization)
  Sender: FDA-Public Use
  Company Number: CA-ABBVIE-22K-028-4427993-00

PATIENT
  Sex: Male
  Weight: 105.25 kg

DRUGS (13)
  1. SKYRIZI [Suspect]
     Active Substance: RISANKIZUMAB-RZAA
     Indication: Psoriasis
     Route: 058
     Dates: start: 20200429
  2. SKYRIZI [Suspect]
     Active Substance: RISANKIZUMAB-RZAA
     Route: 058
     Dates: end: 20220615
  3. RIBAVIRIN [Concomitant]
     Active Substance: RIBAVIRIN
     Indication: Hepatic cirrhosis
     Dosage: 600 MG IN MORNING AND NIGHT, BID
     Route: 048
     Dates: start: 20200410, end: 202007
  4. RIBAVIRIN [Concomitant]
     Active Substance: RIBAVIRIN
     Indication: Hepatitis C
  5. SOFOSBUVIR [Concomitant]
     Active Substance: SOFOSBUVIR
     Indication: Hepatic cirrhosis
     Route: 048
     Dates: start: 20200410, end: 202007
  6. SOFOSBUVIR [Concomitant]
     Active Substance: SOFOSBUVIR
     Indication: Hepatitis C
  7. ZOPICLONE [Concomitant]
     Active Substance: ZOPICLONE
     Indication: Insomnia
     Route: 048
     Dates: start: 20200416, end: 202007
  8. MELATONIN [Concomitant]
     Active Substance: MELATONIN
     Indication: Insomnia
     Route: 048
     Dates: start: 202007
  9. QUETIAPINE [Concomitant]
     Active Substance: QUETIAPINE
     Indication: Insomnia
     Route: 048
     Dates: start: 202007, end: 20220313
  10. QUETIAPINE [Concomitant]
     Active Substance: QUETIAPINE
     Route: 048
     Dates: start: 20220314
  11. CITALOPRAM [Concomitant]
     Active Substance: CITALOPRAM HYDROBROMIDE
     Indication: Depression
     Route: 048
     Dates: start: 202009
  12. PFIZER-BIONTECH COVID-19 VACCINE [Concomitant]
     Active Substance: TOZINAMERAN
     Indication: COVID-19 prophylaxis
     Route: 030
     Dates: start: 20210715, end: 20210715
  13. PFIZER-BIONTECH COVID-19 VACCINE [Concomitant]
     Active Substance: TOZINAMERAN
     Route: 030
     Dates: start: 20211027, end: 20211027

REACTIONS (12)
  - Muscle spasms [Recovered/Resolved with Sequelae]
  - Peripheral swelling [Recovered/Resolved with Sequelae]
  - Ascites [Recovered/Resolved with Sequelae]
  - Right ventricular failure [Unknown]
  - Hepatic cirrhosis [Unknown]
  - Hypervolaemia [Unknown]
  - Hyponatraemia [Unknown]
  - Portal hypertension [Unknown]
  - Failure to thrive [Unknown]
  - Cellulitis [Unknown]
  - Dyslipidaemia [Unknown]
  - Alcohol abuse [Unknown]
